FAERS Safety Report 15206278 (Version 1)
Quarter: 2018Q3

REPORT INFORMATION
  Report Type: Spontaneous
  Country: US (occurrence: US)
  Receive Date: 20180727
  Receipt Date: 20180727
  Transmission Date: 20181010
  Serious: No
  Sender: FDA-Public Use
  Company Number: US-JNJFOC-20180704263

PATIENT
  Age: 84 Year
  Sex: Male
  Weight: 72.58 kg

DRUGS (2)
  1. WARFARIN [Concomitant]
     Active Substance: WARFARIN
     Indication: PRODUCT USED FOR UNKNOWN INDICATION
     Dosage: 4 MG FOR 2 DAYS AND THEN 5 MG FOR 5 DAYS.
     Route: 065
  2. TYLENOL EXTRA STRENGTH [Suspect]
     Active Substance: ACETAMINOPHEN
     Indication: HERPES ZOSTER
     Dosage: 1?2 PILLS 3 PER DAILY
     Route: 048
     Dates: start: 20180630

REACTIONS (1)
  - Product use in unapproved indication [Unknown]
